FAERS Safety Report 5036649-5 (Version None)
Quarter: 2006Q2

REPORT INFORMATION
  Report Type: 
  Country: None (occurrence: None)
  Receive Date: 20060628
  Receipt Date: 20060505
  Transmission Date: 20061013
  Serious: Yes (Hospitalization, Other)
  Sender: FDA-Public Use
  Company Number: US-AMGEN-STX178665

PATIENT
  Sex: Male

DRUGS (4)
  1. ENBREL [Suspect]
     Indication: PSORIASIS
     Route: 058
     Dates: start: 20060201, end: 20060401
  2. TRIAMCINOLONE [Concomitant]
     Indication: PSORIASIS
     Route: 061
     Dates: start: 20060111
  3. COMBIVENT [Concomitant]
     Route: 055
  4. ATIVAN [Concomitant]
     Route: 048

REACTIONS (8)
  - ANAEMIA [None]
  - BLOOD GLUCOSE INCREASED [None]
  - CHRONIC LYMPHOCYTIC LEUKAEMIA STAGE 4 [None]
  - EPISTAXIS [None]
  - FAECES DISCOLOURED [None]
  - NEUTROPENIA [None]
  - SPLENOMEGALY [None]
  - THROMBOCYTOPENIA [None]
